FAERS Safety Report 14535548 (Version 2)
Quarter: 2018Q1

REPORT INFORMATION
  Report Type: Report from Study
  Country: US (occurrence: US)
  Receive Date: 20180215
  Receipt Date: 20180216
  Transmission Date: 20180509
  Serious: Yes (Hospitalization, Other)
  Sender: FDA-Public Use
  Company Number: US-BRISTOL-MYERS SQUIBB COMPANY-BMS-2018-012340

PATIENT
  Age: 51 Year
  Sex: Male
  Weight: 51 kg

DRUGS (2)
  1. IPILIMUMAB [Suspect]
     Active Substance: IPILIMUMAB
     Indication: MUCINOUS ADENOCARCINOMA OF APPENDIX
     Dosage: 59 MG, UNK
     Route: 042
     Dates: start: 20170607, end: 20180103
  2. NIVOLUMAB [Suspect]
     Active Substance: NIVOLUMAB
     Indication: MUCINOUS ADENOCARCINOMA OF APPENDIX
     Dosage: 240 MG, Q2WK
     Route: 042
     Dates: start: 20170607, end: 20180103

REACTIONS (1)
  - Obstruction gastric [Recovering/Resolving]

NARRATIVE: CASE EVENT DATE: 20180119
